FAERS Safety Report 5511119-6 (Version None)
Quarter: 2007Q4

REPORT INFORMATION
  Report Type: 
  Country: None (occurrence: None)
  Receive Date: 20071107
  Receipt Date: 20071025
  Transmission Date: 20080405
  Serious: Yes (Death, Hospitalization)
  Sender: FDA-Public Use
  Company Number: 2007-03659

PATIENT
  Sex: Male

DRUGS (4)
  1. VELCADE [Suspect]
     Indication: PLASMACYTOMA
     Dosage: 2.30 MG
     Dates: start: 20070821, end: 20070914
  2. DEXAMETHASONE [Concomitant]
  3. NEXIUM [Concomitant]
  4. ALLOPURINOL [Concomitant]

REACTIONS (2)
  - CARDIAC ARREST [None]
  - HAEMATEMESIS [None]
